FAERS Safety Report 9165520 (Version 1)
Quarter: 2013Q1

REPORT INFORMATION
  Report Type: Report from Study
  Country: GB (occurrence: GB)
  Receive Date: 20130315
  Receipt Date: 20130315
  Transmission Date: 20140127
  Serious: Yes (Death, Life-Threatening, Hospitalization)
  Sender: FDA-Public Use
  Company Number: GB-CELGENEUS-167-C4047-12110480

PATIENT
  Age: 69 Year
  Sex: Female

DRUGS (12)
  1. CC-4047 [Suspect]
     Indication: PLASMA CELL MYELOMA
     Dosage: 4 MILLIGRAM
     Route: 048
     Dates: start: 20120525
  2. CC-4047 [Suspect]
     Dosage: 4 MILLIGRAM
     Route: 048
     Dates: start: 20120921, end: 201210
  3. DEXAMETHASONE [Concomitant]
     Indication: PLASMA CELL MYELOMA
     Route: 065
  4. FLUID [Concomitant]
     Indication: DEHYDRATION
     Route: 041
  5. SYMBICORT TURBUHALER [Concomitant]
     Indication: DYSPNOEA
     Route: 048
     Dates: start: 20121022, end: 20121026
  6. DIFFLAM [Concomitant]
     Indication: SUPPORTIVE CARE
     Dosage: .45 PERCENT
     Route: 048
     Dates: start: 20121022, end: 20121026
  7. SALBUTAMOL [Concomitant]
     Indication: DYSPNOEA
     Route: 048
     Dates: start: 20121022, end: 20121026
  8. CALCICHEW [Concomitant]
     Indication: BONE DISORDER
     Route: 048
     Dates: start: 20121022, end: 20121026
  9. EVOTEC [Concomitant]
     Indication: PAIN
     Route: 061
     Dates: start: 20121022, end: 20121026
  10. BUTRANS [Concomitant]
     Indication: PAIN
     Dosage: 1.4286 MICROGRAM
     Route: 061
     Dates: start: 20121022, end: 20121026
  11. CO-CODAMOL [Concomitant]
     Indication: PAIN
     Dosage: 30/500
     Route: 048
     Dates: start: 20121022, end: 20121026
  12. ORAMORPH [Concomitant]
     Indication: PAIN
     Dosage: 40 MILLIGRAM
     Route: 048
     Dates: start: 20121022, end: 20121026

REACTIONS (4)
  - Diarrhoea [Fatal]
  - Plasma cell myeloma [Fatal]
  - Vomiting [Fatal]
  - Renal failure [Fatal]
